FAERS Safety Report 5517837-8 (Version None)
Quarter: 2007Q4

REPORT INFORMATION
  Report Type: 
  Country: None (occurrence: None)
  Receive Date: 20071113
  Receipt Date: 20071030
  Transmission Date: 20080405
  Serious: Yes (Hospitalization, Other)
  Sender: FDA-Public Use
  Company Number: 42326

PATIENT
  Age: 56 Year
  Sex: Male
  Weight: 97 kg

DRUGS (1)
  1. AMIODARONE HCL [Suspect]
     Indication: VENTRICULAR TACHYCARDIA
     Dates: start: 20071026

REACTIONS (3)
  - CONVULSION [None]
  - GRIP STRENGTH DECREASED [None]
  - UNRESPONSIVE TO STIMULI [None]
